FAERS Safety Report 19206874 (Version 1)
Quarter: 2021Q2

REPORT INFORMATION
  Report Type: Other
  Country: IN (occurrence: IN)
  Receive Date: 20210430
  Receipt Date: 20210430
  Transmission Date: 20210717
  Serious: Yes (Other)
  Sender: FDA-Public Use
  Company Number: IN-B.BRAUN MEDICAL INC.-2110091

PATIENT
  Age: 52 Year
  Sex: Male

DRUGS (1)
  1. 20% MANNITOL INJECTION USP 0264?7578?10 0264?7578?20 [Suspect]
     Active Substance: MANNITOL
     Indication: BLINDNESS
     Route: 042

REACTIONS (1)
  - Drug ineffective [Not Recovered/Not Resolved]
